FAERS Safety Report 6236973-4 (Version None)
Quarter: 2009Q2

REPORT INFORMATION
  Report Type: 
  Country: None (occurrence: None)
  Receive Date: 20090619
  Receipt Date: 20090303
  Transmission Date: 20091009
  Serious: No
  Sender: FDA-Public Use
  Company Number: US-ASTRAZENECA-2009UW05867

PATIENT
  Age: 55 Year
  Sex: Female
  Weight: 56.7 kg

DRUGS (9)
  1. SYMBICORT [Suspect]
     Dosage: 160/4.5 MCG 1PUFF BID
     Route: 055
     Dates: start: 20081101
  2. SYMBICORT [Suspect]
     Dosage: 160/4.5 MCG 1 OR 2 PUFFS PRN
     Route: 055
     Dates: start: 20081201
  3. ATIVAN [Concomitant]
  4. ATENOLOL [Concomitant]
     Route: 048
  5. NEURONTIN [Concomitant]
  6. MOTRIN [Concomitant]
  7. SUDAFED 12 HOUR [Concomitant]
  8. FLONASE [Concomitant]
  9. ADVAIR HFA [Concomitant]

REACTIONS (3)
  - CONTUSION [None]
  - DIARRHOEA [None]
  - EAR INFECTION [None]
